FAERS Safety Report 9820486 (Version 1)
Quarter: 2014Q1

REPORT INFORMATION
  Report Type: Spontaneous
  Country: GB (occurrence: None)
  Receive Date: 20140114
  Receipt Date: 20140114
  Transmission Date: 20141002
  Serious: Yes (Hospitalization, Other)
  Sender: FDA-Public Use
  Company Number: CL-547-2014

PATIENT
  Age: 23 Year
  Sex: Female

DRUGS (1)
  1. METRONIDAZOLE [Suspect]
     Indication: BLASTOCYSTIS INFECTION
     Dosage: 3 TIMES/D
     Route: 048

REACTIONS (5)
  - Deafness bilateral [None]
  - Tinnitus [None]
  - Tenderness [None]
  - Deafness neurosensory [None]
  - Pain in extremity [None]
